FAERS Safety Report 13383710 (Version 4)
Quarter: 2017Q2

REPORT INFORMATION
  Report Type: Spontaneous
  Country: US (occurrence: US)
  Receive Date: 20170329
  Receipt Date: 20170510
  Transmission Date: 20170830
  Serious: Yes (Hospitalization)
  Sender: FDA-Public Use
  Company Number: US-JNJFOC-20170330149

PATIENT
  Age: 68 Year
  Sex: Male

DRUGS (14)
  1. PENTASA [Concomitant]
     Active Substance: MESALAMINE
     Route: 065
  2. ZOCOR [Concomitant]
     Active Substance: SIMVASTATIN
     Route: 065
  3. NORVASC [Concomitant]
     Active Substance: AMLODIPINE BESYLATE
     Route: 065
  4. GLUCOPHAGE [Concomitant]
     Active Substance: METFORMIN HYDROCHLORIDE
     Route: 065
  5. COLCRYS [Concomitant]
     Active Substance: COLCHICINE
     Route: 065
  6. ACTOS [Concomitant]
     Active Substance: PIOGLITAZONE HYDROCHLORIDE
     Route: 065
  7. STELARA [Suspect]
     Active Substance: USTEKINUMAB
     Indication: CROHN^S DISEASE
     Dosage: ONE INFUSION
     Route: 042
     Dates: start: 20170113, end: 20170113
  8. ASA [Concomitant]
     Active Substance: ASPIRIN
     Route: 065
  9. DIOVAN [Concomitant]
     Active Substance: VALSARTAN
     Route: 065
  10. ULTRAM [Concomitant]
     Active Substance: TRAMADOL HYDROCHLORIDE
     Route: 065
  11. GLUCOTROL [Concomitant]
     Active Substance: GLIPIZIDE
     Route: 065
  12. IMDUR [Concomitant]
     Active Substance: ISOSORBIDE MONONITRATE
     Route: 065
  13. INSULIN [Concomitant]
     Active Substance: INSULIN NOS
     Route: 065
  14. PRILOSEC [Concomitant]
     Active Substance: OMEPRAZOLE MAGNESIUM
     Route: 065

REACTIONS (2)
  - Interstitial lung disease [Recovered/Resolved]
  - Infusion related reaction [Recovered/Resolved with Sequelae]

NARRATIVE: CASE EVENT DATE: 201701
